FAERS Safety Report 18311639 (Version 1)
Quarter: 2020Q3

REPORT INFORMATION
  Report Type: Spontaneous
  Country: US (occurrence: US)
  Receive Date: 20200924
  Receipt Date: 20200924
  Transmission Date: 20201103
  Serious: No
  Sender: FDA-Public Use
  Company Number: None

PATIENT
  Age: 79 Year
  Sex: Male
  Weight: 75.15 kg

DRUGS (22)
  1. TRAMADOL 50 [Concomitant]
     Active Substance: TRAMADOL
  2. FINASTERIDE. [Concomitant]
     Active Substance: FINASTERIDE
  3. CAPSICUM OLEORESIN [Concomitant]
     Active Substance: CAPSICUM OLEORESIN
  4. CRANBERRY EXTRACT [Concomitant]
     Active Substance: CRANBERRY JUICE
  5. MAGNESIUM AMINO ACID CHELATE 20% [Concomitant]
  6. GINGO BILOBA EXTRACT [Concomitant]
  7. TAMSULOSIN 0.4MG [Concomitant]
     Active Substance: TAMSULOSIN
  8. ERLEADA [Suspect]
     Active Substance: APALUTAMIDE
     Indication: PROSTATE CANCER
     Route: 048
     Dates: start: 20200902
  9. MULTIVITAMIN [Concomitant]
     Active Substance: VITAMINS
  10. SELENIUM 200MCG [Concomitant]
  11. AMLODIPINE [Concomitant]
     Active Substance: AMLODIPINE BESYLATE
  12. ATORVASTATIN 40MG [Concomitant]
     Active Substance: ATORVASTATIN
  13. PROBIOTIC ACIDOPHILUS [Concomitant]
     Active Substance: LACTOBACILLUS ACIDOPHILUS
  14. BEARBERRY LEAF EXTRACT [Concomitant]
  15. ZINC 15 66MG [Concomitant]
  16. CAYANNE 450MG [Concomitant]
  17. GLUCOSAMINE [Concomitant]
     Active Substance: GLUCOSAMINE
  18. METHOCARBAMOL 750MG [Concomitant]
     Active Substance: METHOCARBAMOL
  19. BIOTIN [Concomitant]
     Active Substance: BIOTIN
  20. GREEN TEA 150MG [Concomitant]
  21. TURMERIC CURCUMIN 500MG [Concomitant]
  22. LUPRON DEPOT 3MONTH 11.25MG [Concomitant]

REACTIONS (1)
  - Dizziness [None]

NARRATIVE: CASE EVENT DATE: 20200902
